FAERS Safety Report 6674087-X (Version None)
Quarter: 2010Q2

REPORT INFORMATION
  Report Type: 
  Country: None (occurrence: None)
  Receive Date: 20100409
  Receipt Date: 20100330
  Transmission Date: 20101027
  Serious: Yes (Disabling)
  Sender: FDA-Public Use
  Company Number: FR-WYE-H13869210

PATIENT
  Sex: Male

DRUGS (5)
  1. CORDARONE [Suspect]
     Indication: TACHYARRHYTHMIA
     Route: 048
     Dates: start: 20020901, end: 20021026
  2. CORDARONE [Suspect]
     Dosage: UNKNOWN
     Route: 065
     Dates: start: 20090201
  3. AVLOCARDYL [Concomitant]
  4. ALPRAZOLAM [Concomitant]
  5. PREVISCAN [Concomitant]

REACTIONS (1)
  - APHONIA PSYCHOGENIC [None]
